FAERS Safety Report 13853791 (Version 1)
Quarter: 2017Q3

REPORT INFORMATION
  Report Type: Spontaneous
  Country: CH (occurrence: CH)
  Receive Date: 20170810
  Receipt Date: 20170810
  Transmission Date: 20171127
  Serious: Yes (Hospitalization)
  Sender: FDA-Public Use
  Company Number: CH-TEVA-792863ISR

PATIENT
  Age: 63 Year
  Sex: Male

DRUGS (14)
  1. PREDNISON GALEPHARM [Suspect]
     Active Substance: PREDNISONE
  2. VOLTAREN [Concomitant]
     Active Substance: DICLOFENAC SODIUM
  3. VINCRISTINE TEVA [Suspect]
     Active Substance: VINCRISTINE
  4. MABTHERA [Suspect]
     Active Substance: RITUXIMAB
     Dates: start: 20161205
  5. VALTREX [Concomitant]
     Active Substance: VALACYCLOVIR HYDROCHLORIDE
  6. ESOMEP MUPS [Concomitant]
     Active Substance: OMEPRAZOLE
  7. ETOPOPHOS [Suspect]
     Active Substance: ETOPOSIDE PHOSPHATE
     Dates: start: 20161224
  8. BACTRIM FORTE LACKTABLETTEN [Concomitant]
  9. FRAGMIN [Concomitant]
     Active Substance: DALTEPARIN SODIUM
  10. DAFALGAN [Concomitant]
     Active Substance: ACETAMINOPHEN
  11. ADRIBLASTIN RD [Suspect]
     Active Substance: DOXORUBICIN HYDROCHLORIDE
  12. ZESTRIL [Concomitant]
     Active Substance: LISINOPRIL
  13. ENDOXAN [Suspect]
     Active Substance: CYCLOPHOSPHAMIDE
  14. MORPHINE HCL [Concomitant]
     Active Substance: MORPHINE HYDROCHLORIDE

REACTIONS (2)
  - Febrile neutropenia [Recovered/Resolved]
  - General physical health deterioration [Recovered/Resolved]

NARRATIVE: CASE EVENT DATE: 20170311
